FAERS Safety Report 5385849-3 (Version None)
Quarter: 2007Q3

REPORT INFORMATION
  Report Type: 
  Country: None (occurrence: None)
  Receive Date: 20070712
  Receipt Date: 20070703
  Transmission Date: 20080115
  Serious: Yes (Other)
  Sender: FDA-Public Use
  Company Number: CH-ELI_LILLY_AND_COMPANY-CH200707001325

PATIENT
  Age: 53 Year
  Sex: Female

DRUGS (3)
  1. CYMBALTA [Suspect]
     Indication: DEPRESSION
     Dosage: 60 MG, DAILY (1/D)
     Route: 048
     Dates: start: 20061205, end: 20070301
  2. RIVOTRIL [Concomitant]
     Indication: EPILEPSY
     Dosage: 1 MG, DAILY (1/D)
     Route: 048
  3. DEPAKENE [Concomitant]
     Indication: EPILEPSY
     Dosage: 900 MG, DAILY (1/D)
     Route: 048

REACTIONS (3)
  - ELECTROENCEPHALOGRAM ABNORMAL [None]
  - MYOCLONUS [None]
  - PETIT MAL EPILEPSY [None]
